FAERS Safety Report 7476526-3 (Version None)
Quarter: 2011Q2

REPORT INFORMATION
  Report Type: 
  Country: None (occurrence: None)
  Receive Date: 20110512
  Receipt Date: 20110509
  Transmission Date: 20111010
  Serious: Yes (Other)
  Sender: FDA-Public Use
  Company Number: US-PFIZER INC-HQWYE698111OCT04

PATIENT
  Sex: Female
  Weight: 72.562 kg

DRUGS (4)
  1. METOPROLOL [Concomitant]
     Indication: SYNCOPE
     Dosage: UNK
     Dates: start: 19950101
  2. PREMARIN [Suspect]
     Indication: HORMONE REPLACEMENT THERAPY
     Dosage: UNK
     Route: 048
     Dates: start: 19920101, end: 19950101
  3. PROVERA [Suspect]
     Indication: HORMONE REPLACEMENT THERAPY
     Dosage: UNK
     Route: 048
     Dates: start: 19920101, end: 19950101
  4. PREMPRO [Suspect]
     Indication: HORMONE REPLACEMENT THERAPY
     Dosage: 0.625 MG/ 2.5 MG
     Route: 048
     Dates: start: 19960101, end: 19990101

REACTIONS (1)
  - BREAST CANCER METASTATIC [None]
